FAERS Safety Report 7932261-6 (Version None)
Quarter: 2011Q4

REPORT INFORMATION
  Report Type: 
  Country: None (occurrence: None)
  Receive Date: 20111121
  Receipt Date: 20111110
  Transmission Date: 20120403
  Serious: Yes (Hospitalization, Other)
  Sender: FDA-Public Use
  Company Number: US-ASTRAZENECA-2011SE07873

PATIENT
  Age: 57 Year
  Sex: Male
  Weight: 108.9 kg

DRUGS (11)
  1. NITROGLYCERIN [Concomitant]
     Indication: CARDIOVASCULAR EVENT PROPHYLAXIS
  2. SEROQUEL [Suspect]
     Indication: BIPOLAR DISORDER
     Dosage: 1 TABLET AM AND 2 TABLETS HS (300 MG AND 600 MG)
     Route: 048
     Dates: start: 20040101
  3. METOPROLOL TARTRATE [Suspect]
     Indication: CARDIOVASCULAR EVENT PROPHYLAXIS
     Route: 048
  4. TRILEPTAL [Concomitant]
     Indication: BIPOLAR DISORDER
  5. PLAVIX [Concomitant]
     Indication: CARDIOVASCULAR EVENT PROPHYLAXIS
  6. ASPIRIN [Concomitant]
  7. LAMICTAL [Concomitant]
     Indication: BIPOLAR DISORDER
  8. MIRAPEX [Concomitant]
     Indication: BIPOLAR DISORDER
  9. SIMVASTATIN [Concomitant]
     Indication: CARDIOVASCULAR EVENT PROPHYLAXIS
  10. CYMBALTA [Concomitant]
     Indication: BIPOLAR DISORDER
  11. PREDNISONE TAB [Concomitant]

REACTIONS (8)
  - ACUTE CORONARY SYNDROME [None]
  - DRUG DOSE OMISSION [None]
  - SUICIDAL IDEATION [None]
  - INSOMNIA [None]
  - HYPERLIPIDAEMIA [None]
  - MYOCARDIAL INFARCTION [None]
  - VIITH NERVE PARALYSIS [None]
  - HYPERTENSION [None]
